FAERS Safety Report 14146882 (Version 2)
Quarter: 2018Q1

REPORT INFORMATION
  Report Type: Report from Study
  Country: None (occurrence: BR)
  Receive Date: 20171101
  Receipt Date: 20180209
  Transmission Date: 20180508
  Serious: Yes (Death, Hospitalization, Other)
  Sender: FDA-Public Use
  Company Number: BR-ABBVIE-17K-020-2144408-00

PATIENT
  Age: 74 Year
  Sex: Female
  Weight: 60 kg

DRUGS (2)
  1. HUMIRA [Suspect]
     Active Substance: ADALIMUMAB
     Indication: RHEUMATOID ARTHRITIS
     Route: 058
     Dates: start: 20140101
  2. LEFLUNOMIDE. [Concomitant]
     Active Substance: LEFLUNOMIDE
     Indication: RHEUMATIC DISORDER

REACTIONS (12)
  - Kidney infection [Fatal]
  - Akathisia [Unknown]
  - Asthenia [Unknown]
  - Blood pressure increased [Recovering/Resolving]
  - Cerebrovascular accident [Recovering/Resolving]
  - Gait disturbance [Unknown]
  - Feeding disorder [Unknown]
  - Lung infection [Fatal]
  - Dysstasia [Unknown]
  - Aphasia [Unknown]
  - Hypokinesia [Unknown]
  - Cerebrovascular accident [Unknown]

NARRATIVE: CASE EVENT DATE: 20170831
